FAERS Safety Report 25361794 (Version 1)
Quarter: 2025Q2

REPORT INFORMATION
  Report Type: Spontaneous
  Country: US (occurrence: US)
  Receive Date: 20250527
  Receipt Date: 20250527
  Transmission Date: 20250717
  Serious: No
  Sender: GLAXOSMITHKLINE
  Company Number: US-GSK-US2025064694

PATIENT
  Age: 53 Year
  Sex: Female

DRUGS (1)
  1. BREO ELLIPTA [Suspect]
     Active Substance: FLUTICASONE FUROATE\VILANTEROL TRIFENATATE
     Indication: Bronchitis
     Dosage: 1 PUFF(S), QD,  100/25MCG
     Dates: start: 2000

REACTIONS (5)
  - Device use error [Unknown]
  - Product dose omission issue [Unknown]
  - Product storage error [Unknown]
  - Product label confusion [Unknown]
  - Off label use [Unknown]

NARRATIVE: CASE EVENT DATE: 20000101
